FAERS Safety Report 7598375-8 (Version None)
Quarter: 2011Q3

REPORT INFORMATION
  Report Type: 
  Country: None (occurrence: None)
  Receive Date: 20110708
  Receipt Date: 20110624
  Transmission Date: 20111222
  Serious: Yes (Other)
  Sender: FDA-Public Use
  Company Number: PHFR2011GB03907

PATIENT
  Age: 40 Year
  Sex: Male

DRUGS (1)
  1. ILARIS [Suspect]
     Indication: CRYOPYRIN ASSOCIATED PERIODIC SYNDROME
     Dosage: UNK

REACTIONS (1)
  - CELLULITIS [None]
